FAERS Safety Report 15545941 (Version 1)
Quarter: 2018Q4

REPORT INFORMATION
  Report Type: Spontaneous
  Country: FR (occurrence: FR)
  Receive Date: 20181024
  Receipt Date: 20181024
  Transmission Date: 20190205
  Serious: Yes (Hospitalization)
  Sender: FDA-Public Use
  Company Number: FR-NAPPMUNDI-GBR-2018-0060617

PATIENT
  Age: 75 Year
  Sex: Male

DRUGS (9)
  1. OXYNORMORO [Suspect]
     Active Substance: OXYCODONE HYDROCHLORIDE
     Indication: BACK PAIN
     Dosage: UNK, STRENGTH 5MG
     Route: 048
     Dates: start: 20180413, end: 20180413
  2. COLCHIMAX                          /01722001/ [Concomitant]
     Active Substance: COLCHICINE\OPIUM\TIEMONIUM METHYLSULFATE
     Dosage: UNK
     Route: 048
     Dates: start: 201804
  3. AVODART [Concomitant]
     Active Substance: DUTASTERIDE
     Dosage: UNK
     Route: 048
  4. LASILIX                            /00032601/ [Concomitant]
     Active Substance: FUROSEMIDE
     Dosage: 0.25 DF, DAILY
     Route: 048
  5. ADENURIC [Concomitant]
     Active Substance: FEBUXOSTAT
     Dosage: UNK
     Route: 048
  6. XARELTO [Concomitant]
     Active Substance: RIVAROXABAN
     Dosage: UNK
     Route: 048
  7. DIAMOX                             /00016901/ [Concomitant]
     Active Substance: ACETAZOLAMIDE
     Dosage: 0.5 DF, DAILY
     Route: 048
  8. ALDACTONE [Concomitant]
     Active Substance: SPIRONOLACTONE
     Dosage: UNK
     Route: 048
  9. XALATAN [Concomitant]
     Active Substance: LATANOPROST
     Dosage: UNK
     Route: 047

REACTIONS (2)
  - Coma [Recovered/Resolved]
  - Altered state of consciousness [Recovered/Resolved]

NARRATIVE: CASE EVENT DATE: 20180413
